FAERS Safety Report 13817192 (Version 1)
Quarter: 2017Q3

REPORT INFORMATION
  Report Type: Report from Study
  Country: BR (occurrence: BR)
  Receive Date: 20170731
  Receipt Date: 20170731
  Transmission Date: 20171127
  Serious: Yes (Other)
  Sender: FDA-Public Use
  Company Number: PHHY2017BR112084

PATIENT
  Sex: Male
  Weight: 67 kg

DRUGS (1)
  1. ACLASTA [Suspect]
     Active Substance: ZOLEDRONIC ACID
     Indication: PRODUCT USED FOR UNKNOWN INDICATION
     Dosage: 1 DF, Q12MO
     Route: 042

REACTIONS (3)
  - Influenza [Unknown]
  - Body height decreased [Unknown]
  - Neoplasm malignant [Unknown]
